FAERS Safety Report 23708179 (Version 1)
Quarter: 2024Q2

REPORT INFORMATION
  Report Type: Report from Study
  Country: JP (occurrence: None)
  Receive Date: 20240404
  Receipt Date: 20240404
  Transmission Date: 20240716
  Serious: Yes (Other)
  Sender: FDA-Public Use
  Company Number: 2024A074968

PATIENT
  Age: 79 Year
  Sex: Female
  Weight: 40.5 kg

DRUGS (2)
  1. OSIMERTINIB [Suspect]
     Active Substance: OSIMERTINIB
     Indication: Non-small cell lung cancer stage IV
     Route: 048
  2. OSIMERTINIB [Suspect]
     Active Substance: OSIMERTINIB
     Indication: Non-small cell lung cancer stage IV
     Route: 048

REACTIONS (3)
  - Blood creatine phosphokinase increased [Recovering/Resolving]
  - Malignant neoplasm progression [Unknown]
  - Dermatitis acneiform [Recovering/Resolving]
